FAERS Safety Report 7813980-9 (Version None)
Quarter: 2011Q4

REPORT INFORMATION
  Report Type: 
  Country: None (occurrence: None)
  Receive Date: 20111014
  Receipt Date: 20111008
  Transmission Date: 20120403
  Serious: Yes (Death)
  Sender: FDA-Public Use
  Company Number: US-PFIZER INC-2011240541

PATIENT
  Sex: Female
  Weight: 55.782 kg

DRUGS (13)
  1. ACETYLSALICYLIC ACID [Concomitant]
     Indication: PROPHYLAXIS
     Dosage: 81 MG, 1X/DAY
     Route: 048
  2. WARFARIN SODIUM [Concomitant]
     Indication: CORONARY ARTERY DISEASE
     Dosage: 2.5 MG, AT NIGHT (QHS)
     Route: 048
  3. TRAMADOL HCL [Suspect]
     Indication: PAIN
     Dosage: 50 MG, EVERY 4 HRS
     Route: 048
  4. REMERON [Suspect]
     Indication: DEPRESSION
     Dosage: 45 MG, AT NIGHT (QHS)
     Route: 048
  5. PLAVIX [Concomitant]
     Indication: CORONARY ARTERY DISEASE
     Dosage: 75 MG, 1X/DAY
     Route: 048
  6. GABAPENTIN [Concomitant]
     Indication: PAIN
     Dosage: 300 MG, 3X/DAY
     Route: 048
  7. FESOTERODINE [Suspect]
     Indication: HYPERTONIC BLADDER
     Dosage: 8 MG, 1X/DAY
     Route: 048
     Dates: start: 20110914, end: 20110901
  8. AMITRIPTYLINE HCL [Suspect]
     Indication: DEPRESSION
     Dosage: 75 MG, AT NIGHT (QHS)
     Route: 048
  9. ATIVAN [Suspect]
     Indication: ANXIETY
     Dosage: 0.5 MG, 2X/DAY
     Route: 048
  10. RISPERDAL [Concomitant]
     Indication: PSYCHOTIC DISORDER
     Dosage: 3 MG, AT NIGHT (QHS)
     Route: 048
  11. HYDROCODONE [Concomitant]
     Indication: BACK PAIN
     Dosage: UNK
     Route: 048
     Dates: start: 20110201
  12. CYMBALTA [Concomitant]
     Indication: DEPRESSION
     Dosage: 60 MG, 2X/DAY
     Route: 048
  13. LUNESTA [Concomitant]
     Indication: INSOMNIA
     Dosage: 3 MG, AT NIGHT (QHS)
     Route: 048

REACTIONS (1)
  - OVERDOSE [None]
